FAERS Safety Report 8421826-3 (Version None)
Quarter: 2012Q2

REPORT INFORMATION
  Report Type: 
  Country: None (occurrence: None)
  Receive Date: 20120323
  Receipt Date: 20111212
  Transmission Date: 20120825
  Serious: Yes (Hospitalization, Other)
  Sender: FDA-Public Use
  Company Number: 163-21880-11122181

PATIENT
  Age: 32 Year
  Sex: Female

DRUGS (4)
  1. REVLIMID [Suspect]
     Indication: DIFFUSE LARGE B-CELL LYMPHOMA
     Dosage: 25 MG, DAILY, LOCAL INFILTRATION ; 25 MG, 1 IN 1 D, PO
     Route: 048
     Dates: start: 20110908
  2. REVLIMID [Suspect]
     Indication: DIFFUSE LARGE B-CELL LYMPHOMA
     Dosage: 25 MG, DAILY, LOCAL INFILTRATION ; 25 MG, 1 IN 1 D, PO
     Route: 048
     Dates: start: 20111006, end: 20111008
  3. ZOFRAN [Concomitant]
  4. NEURONTIN [Concomitant]

REACTIONS (2)
  - RASH PRURITIC [None]
  - PYREXIA [None]
